FAERS Safety Report 5870231-2 (Version None)
Quarter: 2008Q3

REPORT INFORMATION
  Report Type: 
  Country: None (occurrence: None)
  Receive Date: 20080904
  Receipt Date: 20080827
  Transmission Date: 20090109
  Serious: Yes (Hospitalization)
  Sender: FDA-Public Use
  Company Number: AU-BRISTOL-MYERS SQUIBB COMPANY-12845392

PATIENT
  Sex: Female

DRUGS (9)
  1. IRBESARTAN [Suspect]
     Indication: CARDIAC FAILURE
     Route: 048
     Dates: start: 20030424
  2. PRAVASTATIN SODIUM [Concomitant]
     Dates: start: 20040120
  3. AMIODARONE [Concomitant]
     Dates: start: 20000623
  4. IMDUR [Concomitant]
     Dates: start: 20000623
  5. DIGOXIN [Concomitant]
     Dates: start: 20040318
  6. LASIX [Concomitant]
     Dates: start: 20050128
  7. PROPYL-THIOURACIL [Concomitant]
     Dates: start: 20021030
  8. LISINOPRIL [Concomitant]
     Dates: start: 20000616
  9. ASPIRIN [Concomitant]
     Dates: start: 20000101

REACTIONS (2)
  - FALL [None]
  - PUBIC RAMI FRACTURE [None]
